FAERS Safety Report 21900507 (Version 1)
Quarter: 2023Q1

REPORT INFORMATION
  Report Type: Spontaneous
  Country: DE (occurrence: DE)
  Receive Date: 20230123
  Receipt Date: 20230123
  Transmission Date: 20230417
  Serious: Yes (Hospitalization)
  Sender: FDA-Public Use
  Company Number: DE-Covis Pharma GmbH-2023COV00101

PATIENT
  Age: 67 Year
  Sex: Male
  Weight: 85 kg

DRUGS (9)
  1. RILUZOLE [Suspect]
     Active Substance: RILUZOLE
     Indication: Product used for unknown indication
     Route: 048
  2. CHOLECALCIFEROL [Suspect]
     Active Substance: CHOLECALCIFEROL
     Indication: Product used for unknown indication
  3. RAMIPRIL [Concomitant]
     Active Substance: RAMIPRIL
  4. SODIUM PICOSULFATE [Concomitant]
     Active Substance: SODIUM PICOSULFATE
  5. MAGNESIUM SULFATE [Concomitant]
     Active Substance: MAGNESIUM SULFATE
  6. VITAMIN K [Concomitant]
     Active Substance: PHYTONADIONE
  7. .ALPHA.-TOCOPHEROL, DL- [Concomitant]
     Active Substance: .ALPHA.-TOCOPHEROL, DL-
  8. OMEGA-3 FATTY ACIDS [Concomitant]
     Active Substance: OMEGA-3 FATTY ACIDS
  9. CYANOCOBALAMIN;FOLIC ACID;PYRIDOXINE [Concomitant]

REACTIONS (5)
  - Abdominal pain upper [Unknown]
  - Constipation [Unknown]
  - Nausea [Unknown]
  - Product prescribing error [Unknown]
  - Product monitoring error [Unknown]
